FAERS Safety Report 19588623 (Version 1)
Quarter: 2021Q3

REPORT INFORMATION
  Report Type: Report from Study
  Country: US (occurrence: US)
  Receive Date: 20210721
  Receipt Date: 20210721
  Transmission Date: 20211014
  Serious: Yes (Other)
  Sender: FDA-Public Use
  Company Number: US-UCBSA-2021034043

PATIENT
  Sex: Female
  Weight: 63.5 kg

DRUGS (10)
  1. VIMPAT [Suspect]
     Active Substance: LACOSAMIDE
     Indication: PRODUCT USED FOR UNKNOWN INDICATION
     Dosage: 100MG ONE HALF TABLET QHS
     Route: 048
  2. LEVETIRACETAM. [Suspect]
     Active Substance: LEVETIRACETAM
     Dosage: 1500 MILLIGRAM, 2X/DAY (BID)
  3. CRYSELLE [Concomitant]
     Active Substance: ETHINYL ESTRADIOL\NORGESTREL
     Indication: PRODUCT USED FOR UNKNOWN INDICATION
  4. LEVETIRACETAM. [Suspect]
     Active Substance: LEVETIRACETAM
     Indication: SEIZURE
     Dosage: 1000 MILLIGRAM, 2X/DAY (BID)
  5. LEVETIRACETAM. [Suspect]
     Active Substance: LEVETIRACETAM
     Dosage: 1000 MILLIGRAM, 2X/DAY (BID)
  6. VIMPAT [Suspect]
     Active Substance: LACOSAMIDE
     Dosage: 200 MILLIGRAM, 2X/DAY (BID)
     Route: 048
  7. VIMPAT [Suspect]
     Active Substance: LACOSAMIDE
     Dosage: INCREASE BY ONE HALF PER WEEK
     Route: 048
  8. ALLEGRA ALLERGY [Concomitant]
     Active Substance: FEXOFENADINE HYDROCHLORIDE
     Indication: PRODUCT USED FOR UNKNOWN INDICATION
  9. MELATONIN [Concomitant]
     Active Substance: MELATONIN
     Indication: PRODUCT USED FOR UNKNOWN INDICATION
  10. FOLIC ACID. [Concomitant]
     Active Substance: FOLIC ACID
     Indication: PRODUCT USED FOR UNKNOWN INDICATION

REACTIONS (5)
  - Suicidal behaviour [Unknown]
  - Simple partial seizures [Recovered/Resolved]
  - Product use issue [Unknown]
  - Wrong technique in product usage process [Unknown]
  - Seizure cluster [Recovered/Resolved]
